FAERS Safety Report 18392982 (Version 2)
Quarter: 2020Q4

REPORT INFORMATION
  Report Type: Spontaneous
  Country: US (occurrence: US)
  Receive Date: 20201016
  Receipt Date: 20201020
  Transmission Date: 20210114
  Serious: Yes (Life-Threatening, Hospitalization)
  Sender: FDA-Public Use
  Company Number: US-PFIZER INC-2020396488

PATIENT
  Age: 44 Year
  Sex: Male

DRUGS (4)
  1. DIAZEPAM. [Suspect]
     Active Substance: DIAZEPAM
     Dosage: 60 MG, DAILY
  2. DIAZEPAM. [Suspect]
     Active Substance: DIAZEPAM
     Dosage: 20 MG, DAILY
  3. DIAZEPAM. [Suspect]
     Active Substance: DIAZEPAM
     Dosage: 80 MG, DAILY
  4. DIAZEPAM. [Suspect]
     Active Substance: DIAZEPAM
     Dosage: 60 MG, DAILY

REACTIONS (4)
  - Cardiovascular somatic symptom disorder [Recovered/Resolved]
  - Depression [Recovered/Resolved]
  - Rebound psychosis [Recovered/Resolved]
  - Intentional product use issue [Unknown]
